FAERS Safety Report 17791856 (Version 8)
Quarter: 2023Q4

REPORT INFORMATION
  Report Type: Spontaneous
  Country: US (occurrence: US)
  Receive Date: 20200515
  Receipt Date: 20231122
  Transmission Date: 20240109
  Serious: Yes (Other)
  Sender: FDA-Public Use
  Company Number: US-PFIZER INC-2020194023

PATIENT
  Age: 69 Year
  Sex: Female

DRUGS (7)
  1. IBRANCE [Suspect]
     Active Substance: PALBOCICLIB
     Indication: Breast cancer metastatic
     Dosage: 125 MG, CYCLIC (ONE TABLET DAILY THREE WEEKS ON AND ONE WEEK OFF)
     Route: 048
     Dates: start: 20200204
  2. IBRANCE [Suspect]
     Active Substance: PALBOCICLIB
     Dosage: 125 MG, CYCLIC (ONE TABLET DAILY THREE WEEKS ON AND ONE WEEK OFF)
     Route: 048
     Dates: start: 20200429
  3. IBRANCE [Suspect]
     Active Substance: PALBOCICLIB
     Dosage: 125 MG, CYCLIC (ONE TABLET DAILY THREE WEEKS ON AND ONE WEEK OFF)
     Route: 048
     Dates: start: 20200817
  4. IBRANCE [Suspect]
     Active Substance: PALBOCICLIB
     Dosage: 100 MG, CYCLIC (TAKE ONE CAPSULE BY MOUTH DAILY THREE WEEKS ON ONE WEEK OFF)
     Route: 048
     Dates: start: 20231101
  5. ANASTROZOLE [Concomitant]
     Active Substance: ANASTROZOLE
     Dosage: UNK
  6. XANAX [Concomitant]
     Active Substance: ALPRAZOLAM
     Dosage: 1 MG, 1 HOUR PRIOR TO MRI
     Route: 048
  7. ZOLEDRONIC ACID [Concomitant]
     Active Substance: ZOLEDRONIC ACID
     Dosage: UNK, DECREASED FREQUENCYTO Q3 MONTHS

REACTIONS (12)
  - Leukopenia [Recovering/Resolving]
  - Diverticulitis [Unknown]
  - Colitis [Unknown]
  - Fatigue [Unknown]
  - Neoplasm progression [Unknown]
  - Therapeutic response unexpected [Unknown]
  - Anaemia [Recovering/Resolving]
  - Insomnia [Unknown]
  - White blood cell count decreased [Unknown]
  - Haemoglobin decreased [Unknown]
  - Viral infection [Unknown]
  - Gastrooesophageal reflux disease [Unknown]

NARRATIVE: CASE EVENT DATE: 20200218
